FAERS Safety Report 5881258-9 (Version None)
Quarter: 2008Q3

REPORT INFORMATION
  Report Type: 
  Country: None (occurrence: None)
  Receive Date: 20080912
  Receipt Date: 20080626
  Transmission Date: 20090109
  Serious: No
  Sender: FDA-Public Use
  Company Number: US-ABBOTT-08P-163-0459424-00

PATIENT
  Sex: Female
  Weight: 71.278 kg

DRUGS (9)
  1. HUMIRA [Suspect]
     Indication: RHEUMATOID ARTHRITIS
     Route: 058
  2. HUMIRA [Suspect]
     Route: 058
  3. HUMIRA [Suspect]
     Route: 058
  4. RISEDRONATE SODIUM [Concomitant]
     Indication: OSTEOPOROSIS
     Route: 048
  5. FOSINOPRIL SODIUM [Concomitant]
     Indication: BLOOD PRESSURE
     Route: 048
  6. ATENOLOL [Concomitant]
     Indication: BLOOD PRESSURE
     Route: 048
  7. HYDROCHLOROTHIAZIDE [Concomitant]
     Indication: NEUROPATHY PERIPHERAL
     Route: 048
  8. CYANOCOBALAMIN-TANNIN COMPLEX [Concomitant]
     Indication: DRUG USE FOR UNKNOWN INDICATION
     Route: 030
  9. TETRYZOLINE HYDROCHLORIDE [Concomitant]
     Indication: GLAUCOMA

REACTIONS (3)
  - JOINT SWELLING [None]
  - OEDEMA PERIPHERAL [None]
  - SPINAL COLUMN STENOSIS [None]
